FAERS Safety Report 8511227-1 (Version None)
Quarter: 2012Q3

REPORT INFORMATION
  Report Type: 
  Country: None (occurrence: None)
  Receive Date: 20120716
  Receipt Date: 20120710
  Transmission Date: 20120928
  Serious: Yes (Death, Hospitalization, Other)
  Sender: FDA-Public Use
  Company Number: PHHY2012FR060358

PATIENT
  Age: 47 Year
  Sex: Male

DRUGS (6)
  1. RIFAMPICIN [Suspect]
     Indication: PULMONARY TUBERCULOSIS
  2. ISONIAZID [Concomitant]
     Indication: PULMONARY TUBERCULOSIS
  3. TACROLIMUS [Interacting]
     Indication: IMMUNOSUPPRESSION
  4. PREDNISOLONE [Interacting]
     Indication: IMMUNOSUPPRESSION
  5. MOXIFLOXACIN [Concomitant]
  6. ETHAMBUTOL HYDROCHLORIDE [Concomitant]

REACTIONS (4)
  - DISSEMINATED TUBERCULOSIS [None]
  - INTESTINAL OBSTRUCTION [None]
  - LIVER TRANSPLANT REJECTION [None]
  - DRUG INTERACTION [None]
